FAERS Safety Report 8181254-5 (Version None)
Quarter: 2012Q1

REPORT INFORMATION
  Report Type: 
  Country: None (occurrence: None)
  Receive Date: 20120302
  Receipt Date: 20120223
  Transmission Date: 20120608
  Serious: Yes (Hospitalization)
  Sender: FDA-Public Use
  Company Number: US-BAYER-2011-096625

PATIENT
  Age: 19 Year
  Sex: Female
  Weight: 61 kg

DRUGS (7)
  1. IMITREX [Concomitant]
     Indication: MIGRAINE
     Dosage: UNK UNK, PRN
     Route: 048
     Dates: start: 20061101, end: 20080201
  2. VALTREX [Concomitant]
     Indication: HERPES VIRUS INFECTION
     Dosage: UNK
     Route: 048
     Dates: start: 20070101, end: 20070401
  3. PHENTERMINE [Concomitant]
     Indication: DECREASED APPETITE
     Dosage: UNK
     Route: 048
     Dates: start: 20040101, end: 20070801
  4. METOCLOPRAM [Concomitant]
     Indication: IRRITABLE BOWEL SYNDROME
     Dosage: UNK
     Route: 048
     Dates: start: 20070301, end: 20070501
  5. DROSPIRENONE AND ETHINYL ESTRADIOL [Suspect]
     Dosage: UNK
     Dates: start: 20080701, end: 20081001
  6. YASMIN [Suspect]
     Dosage: UNK
     Route: 048
     Dates: start: 20061101, end: 20080601
  7. ZELNORM [Concomitant]
     Route: 048

REACTIONS (7)
  - INJURY [None]
  - PAIN [None]
  - BILIARY COLIC [None]
  - ABDOMINAL PAIN [None]
  - GALLBLADDER DISORDER [None]
  - CHOLECYSTITIS ACUTE [None]
  - EMOTIONAL DISTRESS [None]
